FAERS Safety Report 4783854-9 (Version None)
Quarter: 2005Q3

REPORT INFORMATION
  Report Type: 
  Country: None (occurrence: None)
  Receive Date: 20050929
  Receipt Date: 20050621
  Transmission Date: 20060218
  Serious: Yes (Death, Hospitalization)
  Sender: FDA-Public Use
  Company Number: US-MERCK-0506USA03338

PATIENT
  Age: 40 Year
  Sex: Female
  Weight: 70 kg

DRUGS (23)
  1. VIOXX [Suspect]
     Indication: BACK PAIN
     Route: 048
     Dates: start: 20000201, end: 20030308
  2. VIOXX [Suspect]
     Indication: ARTHRALGIA
     Route: 048
     Dates: start: 20000201, end: 20030308
  3. RANITIDINE [Concomitant]
     Indication: GASTROOESOPHAGEAL REFLUX DISEASE
     Route: 065
  4. CLARITIN [Concomitant]
     Indication: HYPERSENSITIVITY
     Route: 065
  5. FIORICET TABLETS [Concomitant]
     Indication: TENSION HEADACHE
     Route: 065
  6. ELAVIL [Concomitant]
     Indication: DEPRESSION
     Route: 065
  7. PRILOSEC [Concomitant]
     Indication: GASTROOESOPHAGEAL REFLUX DISEASE
     Route: 065
  8. NAPROXEN [Concomitant]
     Indication: PAIN
     Route: 065
  9. K-DUR 10 [Concomitant]
     Indication: MINERAL SUPPLEMENTATION
     Route: 065
  10. INDOMETHACIN [Concomitant]
     Indication: PAIN
     Route: 065
  11. WELLBUTRIN [Concomitant]
     Indication: DEPRESSION
     Route: 065
  12. TOLMETIN SODIUM [Concomitant]
     Indication: PAIN
     Route: 065
  13. AXID [Concomitant]
     Indication: GASTROOESOPHAGEAL REFLUX DISEASE
     Route: 065
  14. CIMETIDINE [Concomitant]
     Indication: GASTROOESOPHAGEAL REFLUX DISEASE
     Route: 065
  15. METHOCARBAMOL [Concomitant]
     Indication: MUSCLE RELAXANT THERAPY
     Route: 065
  16. PROMETHAZINE [Concomitant]
     Indication: NAUSEA
     Route: 065
  17. ATUSS DM [Concomitant]
     Indication: COUGH
     Route: 065
  18. VEETIDS [Concomitant]
     Indication: INFECTION
     Route: 065
  19. CEPHALEXIN [Concomitant]
     Indication: ANTIBIOTIC LEVEL THERAPEUTIC
     Route: 065
  20. DIPHENHYDRAMINE HYDROCHLORIDE [Concomitant]
     Indication: HYPERSENSITIVITY
     Route: 065
  21. CHLORPHENAMINE [Concomitant]
     Indication: HYPERSENSITIVITY
     Route: 065
  22. FLOXIN [Concomitant]
     Indication: INFECTION
     Route: 065
  23. AMITRIPTYLINE HYDROCHLORIDE [Concomitant]
     Route: 065

REACTIONS (15)
  - ACUTE MYOCARDIAL INFARCTION [None]
  - ADVERSE EVENT [None]
  - ANHEDONIA [None]
  - ATHEROSCLEROSIS [None]
  - BREAST CANCER FEMALE [None]
  - CARDIAC FAILURE CONGESTIVE [None]
  - CARDIO-RESPIRATORY ARREST [None]
  - COLON CANCER [None]
  - HAEMATOCHEZIA [None]
  - LOSS OF CONSCIOUSNESS [None]
  - MYOCARDIAL INFARCTION [None]
  - OVARIAN CYST [None]
  - PAIN [None]
  - RENAL DISORDER [None]
  - VENTRICULAR FIBRILLATION [None]
